FAERS Safety Report 8875530 (Version 2)
Quarter: 2012Q4

REPORT INFORMATION
  Report Type: 
  Country: IT (occurrence: IT)
  Receive Date: 20121023
  Receipt Date: 20121114
  Transmission Date: 20130627
  Serious: Yes (Hospitalization, Other)
  Sender: FDA-Public Use
  Company Number: IT-BRISTOL-MYERS SQUIBB COMPANY-17037185

PATIENT
  Age: 81 Year
  Sex: Male

DRUGS (1)
  1. COUMADIN TABS 5 MG [Suspect]
     Indication: ATRIAL FIBRILLATION
     Dosage: 05-Jul-2011 to 04-Jul-2012
     Route: 048
     Dates: start: 20110705

REACTIONS (2)
  - Cerebral haemorrhage [Not Recovered/Not Resolved]
  - Blood pressure increased [Unknown]
